FAERS Safety Report 20176128 (Version 1)
Quarter: 2021Q4

REPORT INFORMATION
  Report Type: Spontaneous
  Country: DE (occurrence: DE)
  Receive Date: 20211213
  Receipt Date: 20211213
  Transmission Date: 20220304
  Serious: Yes (Death, Hospitalization, Other)
  Sender: FDA-Public Use
  Company Number: DE-009507513-2108DEU004869

PATIENT
  Age: 57 Year
  Sex: Male
  Weight: 74 kg

DRUGS (1)
  1. PEMBROLIZUMAB [Suspect]
     Active Substance: PEMBROLIZUMAB
     Indication: Progressive multifocal leukoencephalopathy
     Dosage: (DOSE VARIED FROM 148 MG TO 64 MG) (ALSO REPORTED 200 MG/KG; CONFLICT INFORMATION) EVERY 2 WEEKS FOR
     Route: 042
     Dates: start: 20200316, end: 20210709

REACTIONS (4)
  - Cardiac failure [Fatal]
  - Immune-mediated hepatitis [Unknown]
  - Congestive hepatopathy [Unknown]
  - Off label use [Unknown]

NARRATIVE: CASE EVENT DATE: 20210316
